FAERS Safety Report 6107957-1 (Version None)
Quarter: 2009Q1

REPORT INFORMATION
  Report Type: 
  Country: None (occurrence: None)
  Receive Date: 20090309
  Receipt Date: 20090227
  Transmission Date: 20090719
  Serious: Yes (Death, Hospitalization)
  Sender: FDA-Public Use
  Company Number: IE-ASTRAZENECA-2009GB00543

PATIENT
  Age: 27087 Day
  Sex: Male
  Weight: 74 kg

DRUGS (5)
  1. CASODEX [Suspect]
     Indication: PROSTATE CANCER METASTATIC
     Route: 048
     Dates: start: 20090108, end: 20090208
  2. EMCOR [Concomitant]
  3. MELFEN [Concomitant]
     Dosage: 400 MG
  4. ASPIRIN [Concomitant]
     Dosage: 75 MG
  5. ALLOPURINOL [Concomitant]
     Dosage: 100 MG

REACTIONS (1)
  - INTERSTITIAL LUNG DISEASE [None]
